FAERS Safety Report 19589850 (Version 1)
Quarter: 2021Q3

REPORT INFORMATION
  Report Type: Spontaneous
  Country: US (occurrence: US)
  Receive Date: 20210721
  Receipt Date: 20210721
  Transmission Date: 20211014
  Serious: No
  Sender: FDA-Public Use
  Company Number: US-IGSA-BIG0014583

PATIENT
  Age: 6 Year
  Sex: Male
  Weight: 17.69 kg

DRUGS (6)
  1. DUPIXENT [Concomitant]
     Active Substance: DUPILUMAB
  2. HUMIRA [Concomitant]
     Active Substance: ADALIMUMAB
  3. IBUPROFEN. [Concomitant]
     Active Substance: IBUPROFEN
     Indication: PREMEDICATION
     Dosage: 1 HOUR PRIOR TO INFUSION
     Dates: start: 202103
  4. XEMBIFY [Suspect]
     Active Substance: HUMAN IMMUNOGLOBULIN G
     Indication: PRIMARY IMMUNODEFICIENCY SYNDROME
     Dosage: 3 MILLIGRAM, Q.WK.
     Route: 058
     Dates: start: 202103
  5. DIPHENHYDRAMINE. [Concomitant]
     Active Substance: DIPHENHYDRAMINE
     Indication: PREMEDICATION
     Dosage: 1 HOUR PRIOR TO INFUSION
     Dates: start: 202103
  6. KEPPRA [Concomitant]
     Active Substance: LEVETIRACETAM

REACTIONS (11)
  - Headache [Recovering/Resolving]
  - Plantar erythema [Recovering/Resolving]
  - Pain [Recovering/Resolving]
  - Infusion site erythema [Recovering/Resolving]
  - Crying [Recovering/Resolving]
  - Nausea [Recovering/Resolving]
  - Burning sensation [Recovering/Resolving]
  - Infusion site irritation [Recovering/Resolving]
  - Infusion site swelling [Recovering/Resolving]
  - Injection site infection [Recovering/Resolving]
  - Erythema [Recovering/Resolving]

NARRATIVE: CASE EVENT DATE: 202103
